FAERS Safety Report 17244932 (Version 1)
Quarter: 2020Q1

REPORT INFORMATION
  Report Type: Spontaneous
  Country: GB (occurrence: GB)
  Receive Date: 20200108
  Receipt Date: 20200108
  Transmission Date: 20200409
  Serious: Yes (Other)
  Sender: FDA-Public Use
  Company Number: GB-TEVA-2020-GB-1163738

PATIENT
  Age: 48 Year
  Sex: Female
  Weight: 59 kg

DRUGS (9)
  1. LANSOPRAZOLE. [Concomitant]
     Active Substance: LANSOPRAZOLE
     Dosage: TAKE WHILST TAKING NAPROXEN,  1DF
     Dates: start: 20190701
  2. KLIOVANCE [Concomitant]
     Active Substance: ESTRADIOL\NORETHINDRONE ACETATE
     Dosage: 1DF
     Dates: start: 20191003
  3. NAPROXEN. [Concomitant]
     Active Substance: NAPROXEN
     Dosage: 2DF
     Dates: start: 20190813
  4. FLUOXETINE [Concomitant]
     Active Substance: FLUOXETINE HYDROCHLORIDE
     Dosage: 1 DF
     Dates: start: 20190701
  5. SUMATRIPTAN. [Concomitant]
     Active Substance: SUMATRIPTAN
     Dosage: TAKE ONE OR TWO, FOLLOWED BY FURTHER 1 O...
     Dates: start: 20191108, end: 20191109
  6. CLARITHROMYCIN. [Suspect]
     Active Substance: CLARITHROMYCIN
     Dosage: 500 MG
     Dates: start: 20191203
  7. CODEINE PHOSPHATE [Concomitant]
     Active Substance: CODEINE PHOSPHATE
     Dosage: 4 DF
     Dates: start: 20190910, end: 20191008
  8. PHENOXYMETHYLPENICILLIN [Concomitant]
     Active Substance: PENICILLIN V
     Dosage: 8 DF
     Dates: start: 20191204
  9. NEOMYCIN SULFATE. [Concomitant]
     Active Substance: NEOMYCIN SULFATE
     Dosage: APPLY A SMALL AMOUNT TO THE INSIDE OF ...
     Dates: start: 20191203

REACTIONS (2)
  - Nausea [Recovered/Resolved]
  - Paraesthesia oral [Recovered/Resolved]

NARRATIVE: CASE EVENT DATE: 20191204
